FAERS Safety Report 18732013 (Version 1)
Quarter: 2021Q1

REPORT INFORMATION
  Report Type: Spontaneous
  Country: CA (occurrence: CA)
  Receive Date: 20210112
  Receipt Date: 20210112
  Transmission Date: 20210419
  Serious: Yes (Life-Threatening)
  Sender: FDA-Public Use
  Company Number: CA-TEVA-2021-CA-1866486

PATIENT
  Age: 86 Year
  Sex: Female

DRUGS (15)
  1. IMOVANE [Concomitant]
     Active Substance: ZOPICLONE
  2. MIDODRINE [Concomitant]
     Active Substance: MIDODRINE
  3. REACTINE [Concomitant]
  4. SENOKOT [Concomitant]
     Active Substance: SENNOSIDES
  5. NITROFURANTOIN. [Suspect]
     Active Substance: NITROFURANTOIN
     Route: 065
  6. LASIX [Concomitant]
     Active Substance: FUROSEMIDE
  7. ASPIRIN. [Concomitant]
     Active Substance: ASPIRIN
  8. DOMPERIDONE [Concomitant]
     Active Substance: DOMPERIDONE
  9. PANTOLOC [Concomitant]
     Active Substance: PANTOPRAZOLE SODIUM
  10. LACTULOSE SYRUP [Concomitant]
     Active Substance: LACTULOSE
  11. POTASSIUM [Concomitant]
     Active Substance: POTASSIUM
  12. SYNTHROID [Concomitant]
     Active Substance: LEVOTHYROXINE SODIUM
  13. ADVAIR HFA [Concomitant]
     Active Substance: FLUTICASONE PROPIONATE\SALMETEROL XINAFOATE
  14. BISOPROLOL [Concomitant]
     Active Substance: BISOPROLOL
  15. HYDROMORPHONE [Concomitant]
     Active Substance: HYDROMORPHONE

REACTIONS (2)
  - Pulmonary oedema [Recovered/Resolved]
  - Malaise [Recovered/Resolved]
